FAERS Safety Report 13747599 (Version 4)
Quarter: 2017Q4

REPORT INFORMATION
  Report Type: Report from Study
  Country: US (occurrence: US)
  Receive Date: 20170712
  Receipt Date: 20171102
  Transmission Date: 20180320
  Serious: Yes (Death, Life-Threatening)
  Sender: FDA-Public Use
  Company Number: US-VIFOR (INTERNATIONAL) INC.-VIT-2017-07540

PATIENT
  Age: 57 Year
  Sex: Male
  Weight: 88.08 kg

DRUGS (24)
  1. FAMOTIDINE. [Concomitant]
     Active Substance: FAMOTIDINE
  2. NOVOLIN [Concomitant]
     Active Substance: INSULIN HUMAN
  3. TICAGRELOR. [Concomitant]
     Active Substance: TICAGRELOR
  4. MECLIZINE [Concomitant]
     Active Substance: MECLIZINE HYDROCHLORIDE
  5. RENVELA [Concomitant]
     Active Substance: SEVELAMER CARBONATE
  6. HYDRALAZINE [Concomitant]
     Active Substance: HYDRALAZINE HYDROCHLORIDE
  7. LORATADINE. [Concomitant]
     Active Substance: LORATADINE
  8. RANOLAZINE. [Concomitant]
     Active Substance: RANOLAZINE
  9. ATORVASTATIN [Concomitant]
     Active Substance: ATORVASTATIN
  10. DOCUSATE SODIUM. [Concomitant]
     Active Substance: DOCUSATE SODIUM
  11. GABAPENTIN. [Concomitant]
     Active Substance: GABAPENTIN
  12. OMEGA-3 FATTY ACIDS [Concomitant]
     Active Substance: OMEGA-3 FATTY ACIDS
  13. COLECALCIFEROL [Concomitant]
     Active Substance: CHOLECALCIFEROL
  14. VELTASSA [Suspect]
     Active Substance: PATIROMER
     Indication: HYPERKALAEMIA
     Route: 048
     Dates: start: 201705, end: 201706
  15. ACETYLSALICYLIC ACID [Concomitant]
     Active Substance: ASPIRIN
  16. CARVEDILOL. [Concomitant]
     Active Substance: CARVEDILOL
  17. LOSARTAN POTASSIUM. [Concomitant]
     Active Substance: LOSARTAN POTASSIUM
  18. AMITRIPTYLINE HYDROCHLORIDE. [Concomitant]
     Active Substance: AMITRIPTYLINE HYDROCHLORIDE
  19. OMEPRAZOLE. [Concomitant]
     Active Substance: OMEPRAZOLE
  20. CINACALCET HYDROCHLORIDE [Concomitant]
     Active Substance: CINACALCET HYDROCHLORIDE
  21. CLONIDINE. [Concomitant]
     Active Substance: CLONIDINE
  22. LANTUS [Concomitant]
     Active Substance: INSULIN GLARGINE
  23. MINOXIDIL. [Concomitant]
     Active Substance: MINOXIDIL
  24. MONTELUKAST [Concomitant]
     Active Substance: MONTELUKAST SODIUM

REACTIONS (2)
  - Brain death [Fatal]
  - Cardiac arrest [Fatal]

NARRATIVE: CASE EVENT DATE: 2017
